FAERS Safety Report 11115464 (Version 1)
Quarter: 2015Q2

REPORT INFORMATION
  Report Type: Spontaneous
  Country: FI (occurrence: FI)
  Receive Date: 20150515
  Receipt Date: 20150515
  Transmission Date: 20150821
  Serious: Yes (Hospitalization)
  Sender: FDA-Public Use
  Company Number: FI-SA-2015SA038741

PATIENT
  Sex: Female

DRUGS (1)
  1. LANTUS [Suspect]
     Active Substance: INSULIN GLARGINE
     Indication: TYPE 2 DIABETES MELLITUS
     Dosage: DOSE:90 UNIT(S)
     Route: 065
     Dates: start: 20131014, end: 20150312

REACTIONS (22)
  - Injection site injury [Recovering/Resolving]
  - Injection site oedema [Recovering/Resolving]
  - Dyspnoea [Recovering/Resolving]
  - Lung disorder [Recovering/Resolving]
  - Erysipelas [Recovering/Resolving]
  - Renal function test abnormal [Recovering/Resolving]
  - Weight decreased [Recovering/Resolving]
  - Injection site reaction [Recovering/Resolving]
  - General physical health deterioration [Recovering/Resolving]
  - Skin infection [Recovering/Resolving]
  - Skin infection [Recovering/Resolving]
  - Cardiac failure [Recovering/Resolving]
  - C-reactive protein increased [Recovering/Resolving]
  - Atrial fibrillation [Recovering/Resolving]
  - Injection site infection [Recovering/Resolving]
  - Injection site swelling [Recovering/Resolving]
  - Injection site erythema [Recovering/Resolving]
  - Blood glucose increased [Recovering/Resolving]
  - Injection site pain [Recovering/Resolving]
  - Injection site induration [Recovering/Resolving]
  - Skin irritation [Recovering/Resolving]
  - Blood glucose fluctuation [Recovering/Resolving]

NARRATIVE: CASE EVENT DATE: 201310
